FAERS Safety Report 22769759 (Version 3)
Quarter: 2023Q4

REPORT INFORMATION
  Report Type: Spontaneous
  Country: US (occurrence: None)
  Receive Date: 20230801
  Receipt Date: 20231023
  Transmission Date: 20240109
  Serious: No
  Sender: FDA-Public Use
  Company Number: 2023A171202

PATIENT
  Age: 31841 Day
  Sex: Female

DRUGS (1)
  1. SYMBICORT [Suspect]
     Active Substance: BUDESONIDE\FORMOTEROL FUMARATE DIHYDRATE
     Indication: Asthma
     Dosage: 160UG, TWO TIMES A DAY; USED SYMBICORT FOR ABOUT 8-9 YEARS.
     Route: 055

REACTIONS (3)
  - Superficial injury of eye [Unknown]
  - Drug dose omission by device [Unknown]
  - Device delivery system issue [Unknown]

NARRATIVE: CASE EVENT DATE: 20230720
